FAERS Safety Report 6265375-X (Version None)
Quarter: 2009Q3

REPORT INFORMATION
  Report Type: 
  Country: None (occurrence: None)
  Receive Date: 20090709
  Receipt Date: 20090626
  Transmission Date: 20100115
  Serious: No
  Sender: FDA-Public Use
  Company Number: 2009-197846-NL

PATIENT
  Age: 29 Year
  Sex: Female

DRUGS (10)
  1. ETONOGESTREL (BATCH # :  363112/39086) [Suspect]
     Indication: CONTRACEPTION
     Dosage: DF
     Dates: start: 20090106, end: 20090601
  2. CLOBAZAM [Concomitant]
  3. SERTRALINE HYDROCHLORIDE [Concomitant]
  4. DOXYCYCLINE [Concomitant]
  5. ORAL STEROIDS [Concomitant]
  6. HEPATITIS B VACCINE [Concomitant]
  7. TEMAZEPAM [Concomitant]
  8. DIAZEPAM [Concomitant]
  9. ALBUTEROL [Concomitant]
  10. BECLOMETASONE DIPROPIONATE [Concomitant]

REACTIONS (3)
  - ABORTION SPONTANEOUS [None]
  - DRUG EXPOSURE DURING PREGNANCY [None]
  - PREGNANCY WITH IMPLANT CONTRACEPTIVE [None]
